FAERS Safety Report 8415079-X (Version None)
Quarter: 2012Q2

REPORT INFORMATION
  Report Type: 
  Country: None (occurrence: None)
  Receive Date: 20120606
  Receipt Date: 20120605
  Transmission Date: 20120825
  Serious: Yes (Hospitalization)
  Sender: FDA-Public Use
  Company Number: US-JNJFOC-20120502182

PATIENT
  Age: 5 Decade
  Sex: Female

DRUGS (2)
  1. REMICADE [Suspect]
     Route: 042
     Dates: start: 20070306
  2. REMICADE [Suspect]
     Indication: CROHN'S DISEASE
     Dosage: 60TH INFUSION  10 GTTS A MINUTE
     Route: 042
     Dates: start: 20120501, end: 20120501

REACTIONS (2)
  - CONVULSION [None]
  - INFUSION RELATED REACTION [None]
